FAERS Safety Report 22114063 (Version 1)
Quarter: 2023Q1

REPORT INFORMATION
  Report Type: Report from Study
  Country: US (occurrence: US)
  Receive Date: 20230320
  Receipt Date: 20230320
  Transmission Date: 20230417
  Serious: Yes (Other)
  Sender: FDA-Public Use
  Company Number: US-ASTELLAS-2023US008650

PATIENT
  Age: 61 Year
  Sex: Male

DRUGS (1)
  1. ENZALUTAMIDE [Suspect]
     Active Substance: ENZALUTAMIDE
     Indication: Prostate cancer
     Route: 048
     Dates: start: 202302

REACTIONS (4)
  - Dysarthria [Unknown]
  - Pain in extremity [Unknown]
  - Oedema peripheral [Unknown]
  - Back pain [Unknown]

NARRATIVE: CASE EVENT DATE: 20230301
